FAERS Safety Report 8494749 (Version 2)
Quarter: 2015Q1

REPORT INFORMATION
  Report Type: Spontaneous
  Country: US (occurrence: US)
  Receive Date: 20120404
  Receipt Date: 20150326
  Transmission Date: 20150721
  Serious: Yes (Congenital Anomaly, Other)
  Sender: FDA-Public Use
  Company Number: US-ELI_LILLY_AND_COMPANY-US201203008524

PATIENT
  Age: 0 Day

DRUGS (10)
  1. INSULIN REGULAR HM [Concomitant]
     Active Substance: INSULIN NOS
     Dosage: 48 U, UNK
     Route: 064
  2. INSULIN REGULAR HM [Concomitant]
     Active Substance: INSULIN NOS
     Dosage: 48 U, UNK
     Route: 064
  3. IRON [Concomitant]
     Active Substance: IRON
     Dosage: UNK, TID
     Route: 064
  4. IRON [Concomitant]
     Active Substance: IRON
     Dosage: UNK, TID
     Route: 064
  5. PROZAC [Suspect]
     Active Substance: FLUOXETINE HYDROCHLORIDE
     Indication: DEPRESSION
     Route: 064
  6. PROZAC [Suspect]
     Active Substance: FLUOXETINE HYDROCHLORIDE
     Indication: DEPRESSION
     Route: 064
  7. INSULIN N [Concomitant]
     Dosage: 60 U, UNK
     Route: 064
  8. XANAX [Concomitant]
     Active Substance: ALPRAZOLAM
     Route: 064
  9. XANAX [Concomitant]
     Active Substance: ALPRAZOLAM
     Route: 064
  10. INSULIN N [Concomitant]
     Dosage: 60 U, UNK
     Route: 064

REACTIONS (8)
  - Ventricular septal defect [Unknown]
  - Seizure [Recovered/Resolved]
  - Renal aplasia [Not Recovered/Not Resolved]
  - Foetal heart rate deceleration abnormality [Unknown]
  - Premature baby [Unknown]
  - Foetal exposure during pregnancy [Recovered/Resolved]
  - Arachnoid cyst [Unknown]
  - Foetal distress syndrome [Unknown]

NARRATIVE: CASE EVENT DATE: 19940816
